FAERS Safety Report 10074686 (Version 2)
Quarter: 2015Q3

REPORT INFORMATION
  Report Type: Spontaneous
  Country: CA (occurrence: CA)
  Receive Date: 20140414
  Receipt Date: 20150923
  Transmission Date: 20151125
  Serious: Yes (Hospitalization)
  Sender: FDA-Public Use
  Company Number: CA-ROCHE-1383185

PATIENT
  Age: 52 Year
  Sex: Male

DRUGS (3)
  1. ALVESCO [Concomitant]
     Active Substance: CICLESONIDE
  2. XOLAIR [Suspect]
     Active Substance: OMALIZUMAB
     Route: 058
     Dates: start: 20130115
  3. XOLAIR [Suspect]
     Active Substance: OMALIZUMAB
     Indication: ASTHMA
     Route: 058
     Dates: start: 20070608

REACTIONS (8)
  - Asthma [Unknown]
  - Heart rate increased [Unknown]
  - Middle insomnia [Unknown]
  - Dyspnoea [Unknown]
  - Allergy test positive [Unknown]
  - Obstructive airways disorder [Unknown]
  - Wheezing [Unknown]
  - Productive cough [Unknown]

NARRATIVE: CASE EVENT DATE: 20090714
